FAERS Safety Report 4783362-5 (Version None)
Quarter: 2005Q3

REPORT INFORMATION
  Report Type: 
  Country: None (occurrence: None)
  Receive Date: 20050929
  Receipt Date: 20050917
  Transmission Date: 20060218
  Serious: Yes (Other)
  Sender: FDA-Public Use
  Company Number: US-ROCHE-418361

PATIENT
  Age: 60 Year
  Sex: Female

DRUGS (4)
  1. PEGASYS [Suspect]
     Indication: HEPATITIS C
     Dosage: FREQUENCY: EVERY WEEK
     Route: 050
     Dates: start: 20041104, end: 20050315
  2. PEGASYS [Suspect]
     Dosage: DOSAGE REGIMEN: EVERY WEEK
     Route: 050
     Dates: start: 20050315, end: 20050615
  3. COPEGUS [Suspect]
     Indication: HEPATITIS C
     Route: 048
     Dates: start: 20041104, end: 20050615
  4. CELEXA [Concomitant]
     Indication: DEPRESSION
     Route: 048
     Dates: start: 20030615

REACTIONS (10)
  - ALOPECIA [None]
  - ANAEMIA [None]
  - AUTOIMMUNE DISORDER [None]
  - BONE PAIN [None]
  - HEPATITIS C [None]
  - INSOMNIA [None]
  - LUNG NEOPLASM [None]
  - MYALGIA [None]
  - SYSTEMIC LUPUS ERYTHEMATOSUS [None]
  - THYROID DISORDER [None]
